FAERS Safety Report 9088329 (Version 1)
Quarter: 2013Q1

REPORT INFORMATION
  Report Type: Spontaneous
  Country: NL (occurrence: NL)
  Receive Date: 20130201
  Receipt Date: 20130201
  Transmission Date: 20140127
  Serious: Yes (Life-Threatening, Hospitalization, Congenital Anomaly)
  Sender: FDA-Public Use
  Company Number: NL-PFIZER INC-2013040229

PATIENT
  Sex: Female
  Weight: 2.9 kg

DRUGS (1)
  1. EFEXOR XR [Suspect]
     Indication: DEPRESSION
     Dosage: UNK
     Route: 064

REACTIONS (2)
  - Maternal exposure timing unspecified [Recovered/Resolved with Sequelae]
  - Congenital diaphragmatic hernia [Recovered/Resolved with Sequelae]
